FAERS Safety Report 13918770 (Version 5)
Quarter: 2017Q4

REPORT INFORMATION
  Report Type: Report from Study
  Country: None (occurrence: US)
  Receive Date: 20170830
  Receipt Date: 20171117
  Transmission Date: 20180320
  Serious: No
  Sender: FDA-Public Use
  Company Number: US-ABBVIE-17K-163-2011785-00

PATIENT
  Age: 79 Year
  Sex: Female

DRUGS (8)
  1. HUMIRA [Suspect]
     Active Substance: ADALIMUMAB
     Indication: COLITIS ULCERATIVE
     Route: 058
     Dates: start: 2015
  2. PROBIOTICS [Concomitant]
     Active Substance: PROBIOTICS NOS
     Indication: PRODUCT USED FOR UNKNOWN INDICATION
  3. HYDROCODONE [Concomitant]
     Active Substance: HYDROCODONE
     Indication: PAIN
  4. CLONAZEPAM. [Concomitant]
     Active Substance: CLONAZEPAM
     Indication: ANXIETY
  5. LORAZEPAM. [Concomitant]
     Active Substance: LORAZEPAM
     Indication: ANXIETY
  6. METOPROLOL. [Concomitant]
     Active Substance: METOPROLOL
     Indication: MIGRAINE
  7. LOPERAMIDE [Concomitant]
     Active Substance: LOPERAMIDE
     Indication: DIARRHOEA
  8. WARFARIN [Concomitant]
     Active Substance: WARFARIN
     Indication: ANTICOAGULANT THERAPY

REACTIONS (10)
  - Joint swelling [Recovered/Resolved]
  - Pain in extremity [Not Recovered/Not Resolved]
  - Distichiasis [Recovered/Resolved]
  - Arthropod bite [Recovered/Resolved]
  - Nasopharyngitis [Recovering/Resolving]
  - Breast discolouration [Recovered/Resolved]
  - Contusion [Recovered/Resolved]
  - Abdominal hernia [Not Recovered/Not Resolved]
  - Neck mass [Recovered/Resolved]
  - Back pain [Not Recovered/Not Resolved]

NARRATIVE: CASE EVENT DATE: 201704
